FAERS Safety Report 10477884 (Version 1)
Quarter: 2014Q3

REPORT INFORMATION
  Report Type: Spontaneous
  Country: US (occurrence: None)
  Receive Date: 20140924
  Receipt Date: 20140924
  Transmission Date: 20150326
  Serious: Yes (Death)
  Sender: FDA-Public Use
  Company Number: 2014090048

PATIENT
  Age: 77 Year
  Sex: Female
  Weight: 81.65 kg

DRUGS (7)
  1. PHENERGAN (PROMETHAZINE (TABLET)) [Concomitant]
  2. LASIX [Concomitant]
     Active Substance: FUROSEMIDE
  3. LISINOPRIL (LISINOPRIL) [Concomitant]
     Active Substance: LISINOPRIL
  4. FELBATOL [Suspect]
     Active Substance: FELBAMATE
     Indication: CONVULSION
     Dosage: (600 MG, 2 IN 1 D)
     Route: 048
  5. MULTIVITAMINS (MULTIVITAMINS) [Concomitant]
     Active Substance: VITAMINS
  6. MS-CONTIN (MORPHINE SULFATE (TABLET)) [Concomitant]
  7. REQUIP (ROPINIROLE HYDROCHLORIDE (TABLET)) [Concomitant]

REACTIONS (1)
  - Colon cancer metastatic [None]

NARRATIVE: CASE EVENT DATE: 2011
